FAERS Safety Report 6107615-3 (Version None)
Quarter: 2009Q1

REPORT INFORMATION
  Report Type: 
  Country: None (occurrence: None)
  Receive Date: 20090305
  Receipt Date: 20090221
  Transmission Date: 20090719
  Serious: Yes (Other)
  Sender: FDA-Public Use
  Company Number: CHPA2009US05352

PATIENT
  Age: 50 Year
  Sex: Female

DRUGS (4)
  1. THERAFLU DAYTIME SEVERE COLD NO PSE (NCH) PARACETAMOL, PHENYLEPHRINE) [Suspect]
     Indication: NASOPHARYNGITIS
     Dosage: 1 DF,ONCE/SINGLE,ORAL
     Route: 048
  2. ROBITUSSIN ^ROBINS^ (GUAIFENESIN) [Concomitant]
  3. FOSAMAX [Concomitant]
  4. NORCO [Concomitant]

REACTIONS (5)
  - ARTHRITIS [None]
  - DIABETES MELLITUS [None]
  - DIZZINESS [None]
  - NERVOUSNESS [None]
  - OSTEOPOROSIS [None]
